FAERS Safety Report 23839685 (Version 3)
Quarter: 2024Q2

REPORT INFORMATION
  Report Type: Spontaneous
  Country: GB (occurrence: GB)
  Receive Date: 20240510
  Receipt Date: 20240605
  Transmission Date: 20240716
  Serious: Yes (Hospitalization)
  Sender: FDA-Public Use
  Company Number: GB-JNJFOC-20240526173

PATIENT
  Age: 68 Year
  Sex: Female

DRUGS (1)
  1. SIMPONI [Suspect]
     Active Substance: GOLIMUMAB
     Indication: Rheumatoid arthritis
     Dosage: 100MG/1ML
     Route: 058

REACTIONS (3)
  - Illness [Unknown]
  - Inappropriate schedule of product administration [Unknown]
  - Product storage error [Unknown]
